FAERS Safety Report 19633817 (Version 1)
Quarter: 2021Q3

REPORT INFORMATION
  Report Type: Spontaneous
  Country: IT (occurrence: IT)
  Receive Date: 20210729
  Receipt Date: 20210729
  Transmission Date: 20211014
  Serious: Yes (Life-Threatening)
  Sender: FDA-Public Use
  Company Number: IT-JAZZ-2021-IT-013363

PATIENT
  Age: 2 Year
  Sex: Male
  Weight: 14 kg

DRUGS (1)
  1. ERWINASE [Suspect]
     Active Substance: ASPARAGINASE ERWINIA CHRYSANTHEMI
     Indication: ACUTE LEUKAEMIA
     Dosage: 12200 KILO?INTERNATIONAL UNIT
     Route: 041
     Dates: start: 20210705, end: 20210705

REACTIONS (3)
  - Chills [Recovered/Resolved]
  - Livedo reticularis [Recovered/Resolved]
  - Pyrexia [Recovered/Resolved]

NARRATIVE: CASE EVENT DATE: 20210705
